FAERS Safety Report 9630194 (Version 2)
Quarter: 2014Q1

REPORT INFORMATION
  Report Type: Spontaneous
  Country: IT (occurrence: IT)
  Receive Date: 20131017
  Receipt Date: 20140220
  Transmission Date: 20141002
  Serious: Yes (Other)
  Sender: FDA-Public Use
  Company Number: IT-WATSON-2013-18306

PATIENT
  Age: 36 Year
  Sex: Male

DRUGS (2)
  1. MIRTAZAPINE (UNKNOWN) [Suspect]
     Indication: DEPRESSION
     Dosage: 60 MG, TOTAL
     Route: 048
     Dates: start: 20130920, end: 20130920
  2. XANAX [Suspect]
     Indication: DEPRESSION
     Dosage: 3 UNITS, TOTAL
     Route: 048
     Dates: start: 20130920, end: 20130920

REACTIONS (3)
  - Sedation [Recovered/Resolved]
  - Toxicity to various agents [Recovered/Resolved]
  - Intentional drug misuse [Recovered/Resolved]
